FAERS Safety Report 12188856 (Version 2)
Quarter: 2016Q3

REPORT INFORMATION
  Report Type: Report from Study
  Country: US (occurrence: US)
  Receive Date: 20160317
  Receipt Date: 20160803
  Transmission Date: 20161109
  Serious: Yes (Hospitalization, Other)
  Sender: FDA-Public Use
  Company Number: PHHO2016US002138

PATIENT
  Age: 17 Year
  Sex: Female
  Weight: 98.6 kg

DRUGS (14)
  1. VORICONAZOLE. [Concomitant]
     Active Substance: VORICONAZOLE
     Indication: PROPHYLAXIS
     Dosage: 200 MG, Q12H
     Route: 048
     Dates: start: 20160108, end: 20160301
  2. FLUDARABINE [Suspect]
     Active Substance: FLUDARABINE PHOSPHATE
     Indication: ACUTE LYMPHOCYTIC LEUKAEMIA
     Dosage: 30 MG/M2, UNK
     Route: 065
     Dates: start: 20160215, end: 20160218
  3. DESMOPRESSIN [Concomitant]
     Active Substance: DESMOPRESSIN
     Indication: VON WILLEBRAND^S DISEASE
     Dosage: 1 DF (1 SPRAY NASAL)
     Route: 045
     Dates: start: 20151113, end: 20160224
  4. PENTAMIDINE ISETHIONATE [Concomitant]
     Active Substance: PENTAMIDINE ISETHIONATE
     Indication: PROPHYLAXIS
     Dosage: INH PO Q28D
     Route: 055
     Dates: start: 20160112
  5. 6-MP [Concomitant]
     Active Substance: MERCAPTOPURINE
     Indication: CHEMOTHERAPY
     Dosage: 50 MG, Q12H (X5 DAYS) 75 MGX 2 DAYS
     Route: 048
     Dates: start: 20160125
  6. LEVOFLOXACIN. [Concomitant]
     Active Substance: LEVOFLOXACIN
     Indication: ANTIBIOTIC PROPHYLAXIS
     Dosage: 500 MG, QD
     Route: 048
     Dates: start: 20160211, end: 20160224
  7. CTL019 [Suspect]
     Active Substance: TISAGENLECLEUCEL-T
     Indication: ACUTE LYMPHOCYTIC LEUKAEMIA
     Dosage: TOTAL CELL DOSE:0.2418X10^9, TOTAL TRANSDUCED CELLS1X10^6/KG
     Route: 042
     Dates: start: 20160223, end: 20160223
  8. CYCLOPHOSPHAMIDE. [Suspect]
     Active Substance: CYCLOPHOSPHAMIDE
     Indication: ACUTE LYMPHOCYTIC LEUKAEMIA
     Dosage: 500 MG/M2X 3 DAYS
     Route: 065
     Dates: start: 20160215, end: 20160216
  9. MTX [Concomitant]
     Active Substance: METHOTREXATE SODIUM
     Indication: PRODUCT USED FOR UNKNOWN INDICATION
     Dosage: UNK
     Route: 065
  10. VINCRISTINE [Concomitant]
     Active Substance: VINCRISTINE
     Indication: PRODUCT USED FOR UNKNOWN INDICATION
     Dosage: UNK
     Route: 065
  11. ETOPOSIDE. [Suspect]
     Active Substance: ETOPOSIDE
     Indication: ACUTE LYMPHOCYTIC LEUKAEMIA
     Dosage: UNK
     Route: 065
  12. OXYCODONE [Concomitant]
     Active Substance: OXYCODONE
     Indication: PAIN PROPHYLAXIS
  13. ALLOPURINOL. [Concomitant]
     Active Substance: ALLOPURINOL
     Indication: PROPHYLAXIS
     Dosage: UNK
     Route: 065
     Dates: start: 20160112
  14. OXYCODONE [Concomitant]
     Active Substance: OXYCODONE
     Indication: PAIN
     Dosage: 7.6 MG, Q4H (PRN)
     Route: 048
     Dates: start: 20160211

REACTIONS (10)
  - Febrile neutropenia [Recovered/Resolved]
  - Cytokine release syndrome [Recovered/Resolved]
  - Colitis [Recovered/Resolved]
  - Hypoxia [Recovered/Resolved]
  - Hypotension [Recovered/Resolved]
  - Infusion related reaction [Recovered/Resolved]
  - Febrile neutropenia [Recovered/Resolved]
  - Staphylococcal infection [Recovered/Resolved]
  - Cytokine release syndrome [Recovered/Resolved]
  - Staphylococcal bacteraemia [Recovered/Resolved]

NARRATIVE: CASE EVENT DATE: 20151223
